FAERS Safety Report 9520189 (Version 1)
Quarter: 2013Q3

REPORT INFORMATION
  Report Type: Spontaneous
  Country: US (occurrence: US)
  Receive Date: 20130912
  Receipt Date: 20130912
  Transmission Date: 20140515
  Serious: No
  Sender: FDA-Public Use
  Company Number: US-MUTUAL PHARMACEUTICAL COMPANY, INC.-BCTM20120084

PATIENT
  Age: 74 Year
  Sex: Male
  Weight: 70.37 kg

DRUGS (7)
  1. BACTRIM DS [Suspect]
     Indication: STAPHYLOCOCCAL INFECTION
     Route: 048
     Dates: start: 20121203
  2. ASPIRIN [Concomitant]
     Indication: CARDIOVASCULAR EVENT PROPHYLAXIS
     Route: 048
  3. METOPROLOL [Concomitant]
     Indication: BLADDER DISORDER
     Route: 048
  4. FLOMAX [Concomitant]
     Indication: BLADDER DISORDER
     Route: 048
  5. PROSCAR [Concomitant]
     Indication: BLADDER DISORDER
     Route: 048
  6. WARFARIN [Concomitant]
     Indication: ATRIAL FIBRILLATION
     Route: 048
  7. VITAMINS [Concomitant]
     Indication: VITAMIN SUPPLEMENTATION
     Route: 048

REACTIONS (5)
  - Paraesthesia oral [Recovered/Resolved]
  - Oral discomfort [Recovered/Resolved]
  - Hypersensitivity [Recovered/Resolved]
  - Cough [Recovered/Resolved]
  - Productive cough [Recovered/Resolved]
